FAERS Safety Report 9417558 (Version 1)
Quarter: 2013Q3

REPORT INFORMATION
  Report Type: Report from Study
  Country: US (occurrence: US)
  Receive Date: 20130724
  Receipt Date: 20130724
  Transmission Date: 20140515
  Serious: Yes (Other)
  Sender: FDA-Public Use
  Company Number: US-ABBOTT-13P-163-1120201-00

PATIENT
  Age: 54 Year
  Sex: Female
  Weight: 60.84 kg

DRUGS (18)
  1. HUMIRA [Suspect]
     Indication: PSORIASIS
     Dates: end: 201204
  2. HUMIRA [Suspect]
     Indication: PSORIATIC ARTHROPATHY
  3. HUMIRA [Suspect]
     Indication: FIBROMYALGIA
  4. METHOTREXATE [Concomitant]
     Indication: PSORIATIC ARTHROPATHY
  5. METHOTREXATE [Concomitant]
     Indication: FIBROMYALGIA
  6. SAVELLA [Concomitant]
     Indication: FIBROMYALGIA
  7. TOPROL [Concomitant]
     Indication: HYPERTENSION
  8. PREDNISONE [Concomitant]
     Indication: PSORIASIS
  9. PROTONIX [Concomitant]
     Indication: GASTRIC DISORDER
  10. ESTRACE [Concomitant]
     Indication: HORMONE REPLACEMENT THERAPY
  11. CYMBALTA [Concomitant]
     Indication: FIBROMYALGIA
  12. CYMBALTA [Concomitant]
     Indication: DEPRESSION
  13. SOMA [Concomitant]
     Indication: FIBROMYALGIA
  14. NORCO [Concomitant]
     Indication: FIBROMYALGIA
  15. NORCO [Concomitant]
     Indication: PSORIATIC ARTHROPATHY
  16. NORCO [Concomitant]
     Indication: PAIN
  17. NORCO [Concomitant]
     Indication: ARTHRALGIA
  18. XANAX [Concomitant]
     Indication: ANXIETY

REACTIONS (23)
  - Ankle fracture [Recovered/Resolved]
  - Nerve injury [Not Recovered/Not Resolved]
  - Ankle fracture [Recovered/Resolved]
  - Loss of consciousness [Recovered/Resolved]
  - Fall [Recovered/Resolved]
  - Clavicle fracture [Not Recovered/Not Resolved]
  - Neck injury [Unknown]
  - Injury [Unknown]
  - Neck pain [Not Recovered/Not Resolved]
  - Pain [Not Recovered/Not Resolved]
  - Contusion [Recovered/Resolved]
  - Myalgia [Recovered/Resolved]
  - Psoriasis [Recovered/Resolved]
  - Scar [Not Recovered/Not Resolved]
  - Balance disorder [Recovered/Resolved]
  - Fall [Recovered/Resolved]
  - Hand fracture [Recovered/Resolved]
  - Arthritis [Not Recovered/Not Resolved]
  - Scratch [Recovered/Resolved]
  - Contusion [Recovered/Resolved]
  - Blood cholesterol increased [Not Recovered/Not Resolved]
  - Fall [Recovered/Resolved]
  - Weight decreased [Unknown]
